FAERS Safety Report 9017154 (Version 1)
Quarter: 2013Q1

REPORT INFORMATION
  Report Type: Spontaneous
  Country: GB (occurrence: GB)
  Receive Date: 20130117
  Receipt Date: 20130117
  Transmission Date: 20140127
  Serious: Yes (Other)
  Sender: FDA-Public Use
  Company Number: GB-BRISTOL-MYERS SQUIBB COMPANY-17273517

PATIENT
  Sex: 0

DRUGS (1)
  1. BARACLUDE [Suspect]

REACTIONS (1)
  - Liver transplant [Unknown]
